FAERS Safety Report 22094037 (Version 1)
Quarter: 2023Q1

REPORT INFORMATION
  Report Type: Spontaneous
  Country: US (occurrence: US)
  Receive Date: 20230314
  Receipt Date: 20230314
  Transmission Date: 20230418
  Serious: No
  Sender: FDA-Public Use
  Company Number: US-BAYER-2023A030194

PATIENT
  Sex: Female

DRUGS (1)
  1. MIRALAX [Suspect]
     Active Substance: POLYETHYLENE GLYCOL 3350
     Indication: Preoperative care
     Dosage: UNK
     Route: 048
     Dates: start: 202303, end: 202303

REACTIONS (2)
  - Off label use [None]
  - Expired product administered [None]

NARRATIVE: CASE EVENT DATE: 20230301
